FAERS Safety Report 15136789 (Version 4)
Quarter: 2018Q3

REPORT INFORMATION
  Report Type: Spontaneous
  Country: GB (occurrence: GB)
  Receive Date: 20180712
  Receipt Date: 20180817
  Transmission Date: 20181010
  Serious: Yes (Other)
  Sender: FDA-Public Use
  Company Number: PHHY2018GB040679

PATIENT
  Age: 81 Year
  Sex: Male

DRUGS (6)
  1. NYSTATIN. [Suspect]
     Active Substance: NYSTATIN
     Indication: ORAL INFECTION
     Dosage: UNK, QID
     Route: 048
  2. ALLOPURINOL. [Concomitant]
     Active Substance: ALLOPURINOL
     Indication: GOUT
     Dosage: 100 MG, QD
     Route: 048
  3. SIMVASTATIN. [Concomitant]
     Active Substance: SIMVASTATIN
     Indication: BLOOD CHOLESTEROL INCREASED
     Dosage: 40 MG, QD
     Route: 048
  4. NYSTATIN. [Suspect]
     Active Substance: NYSTATIN
     Indication: FUNGAL INFECTION
     Dosage: 1 ML, QD
     Route: 048
     Dates: start: 20160212, end: 20160219
  5. ISOSORBIDE MONONITRATE. [Concomitant]
     Active Substance: ISOSORBIDE MONONITRATE
     Indication: ANGINA PECTORIS
     Dosage: 60 MG, QD
     Route: 048
  6. GLUCOPHAGE [Concomitant]
     Active Substance: METFORMIN HYDROCHLORIDE
     Indication: DIABETES MELLITUS
     Dosage: 500 MG, QD
     Route: 048

REACTIONS (12)
  - Malaise [Unknown]
  - Abdominal distension [Unknown]
  - Diarrhoea [Unknown]
  - Blister [Unknown]
  - Confusional state [Unknown]
  - Eye pain [Unknown]
  - Pain [Unknown]
  - Off label use [Unknown]
  - Disorientation [Unknown]
  - Stevens-Johnson syndrome [Unknown]
  - Lip blister [Unknown]
  - Abdominal pain upper [Unknown]
